FAERS Safety Report 18446927 (Version 1)
Quarter: 2020Q4

REPORT INFORMATION
  Report Type: Spontaneous
  Country: US (occurrence: US)
  Receive Date: 20201030
  Receipt Date: 20201030
  Transmission Date: 20210114
  Serious: No
  Sender: FDA-Public Use
  Company Number: None

PATIENT
  Age: 39 Year
  Sex: Female

DRUGS (1)
  1. REMICADE [Suspect]
     Active Substance: INFLIXIMAB
     Indication: RHEUMATOID ARTHRITIS
     Dosage: FREQUENCY: WEEK 0, 2 AND 6 WEEKS
     Route: 042
     Dates: start: 202009, end: 202010

REACTIONS (4)
  - Chest discomfort [None]
  - Nausea [None]
  - Drug hypersensitivity [None]
  - Vomiting [None]

NARRATIVE: CASE EVENT DATE: 202009
